FAERS Safety Report 8318088-4 (Version None)
Quarter: 2012Q2

REPORT INFORMATION
  Report Type: 
  Country: None (occurrence: None)
  Receive Date: 20120427
  Receipt Date: 20120412
  Transmission Date: 20120825
  Serious: Yes (Other)
  Sender: FDA-Public Use
  Company Number: CH-ROCHE-1056983

PATIENT
  Age: 46 Year
  Sex: Female

DRUGS (2)
  1. TRIAMCINOLONE ACETONIDE [Suspect]
     Indication: CASTLEMAN'S DISEASE
     Route: 030
  2. TOCILIZUMAB [Suspect]
     Indication: CASTLEMAN'S DISEASE

REACTIONS (4)
  - INTERLEUKIN LEVEL INCREASED [None]
  - PERIPHERAL ISCHAEMIA [None]
  - ARTERIAL THROMBOSIS [None]
  - HYPERLIPIDAEMIA [None]
